FAERS Safety Report 7843672-1 (Version None)
Quarter: 2011Q4

REPORT INFORMATION
  Report Type: 
  Country: None (occurrence: None)
  Receive Date: 20111025
  Receipt Date: 20111013
  Transmission Date: 20120403
  Serious: Yes (Hospitalization)
  Sender: FDA-Public Use
  Company Number: US-ACTELION-A-NJ2011-50896

PATIENT

DRUGS (3)
  1. ADCIRCA [Concomitant]
  2. COUMADIN [Concomitant]
  3. EPOPROSTENOL SODIUM [Suspect]
     Indication: PULMONARY ARTERIAL HYPERTENSION
     Dosage: 8 NG/KG, PER MIN
     Route: 041
     Dates: start: 20110211

REACTIONS (10)
  - FATIGUE [None]
  - SPEECH DISORDER [None]
  - OEDEMA PERIPHERAL [None]
  - SWELLING [None]
  - ARRHYTHMIA [None]
  - OEDEMA [None]
  - CARDIAC FAILURE [None]
  - VIRAL INFECTION [None]
  - FLUID RETENTION [None]
  - DYSPNOEA [None]
